FAERS Safety Report 9455827 (Version 1)
Quarter: 2013Q3

REPORT INFORMATION
  Report Type: Spontaneous
  Country: BR (occurrence: BR)
  Receive Date: 20130813
  Receipt Date: 20130813
  Transmission Date: 20140515
  Serious: Yes (Hospitalization, Other)
  Sender: FDA-Public Use
  Company Number: BR-009507513-1307BRA017273

PATIENT
  Sex: Male
  Weight: 65 kg

DRUGS (1)
  1. VYTORIN [Suspect]
     Dosage: 1 DF, QD
     Route: 048
     Dates: start: 2009, end: 20130727

REACTIONS (15)
  - Hiatus hernia [Recovered/Resolved]
  - Incisional hernia repair [Unknown]
  - Endotracheal intubation [Unknown]
  - Hypoventilation [Recovered/Resolved]
  - Dry throat [Recovered/Resolved]
  - Dysphagia [Recovered/Resolved]
  - Cataract [Recovered/Resolved]
  - Cataract operation [Unknown]
  - Gastrooesophageal reflux disease [Recovered/Resolved]
  - Dry mouth [Recovered/Resolved]
  - Hot flush [Recovered/Resolved]
  - Insomnia [Recovered/Resolved]
  - Pyrexia [Recovered/Resolved]
  - Gastritis [Recovered/Resolved]
  - Dizziness [Recovered/Resolved]
